FAERS Safety Report 6276699-4 (Version None)
Quarter: 2009Q3

REPORT INFORMATION
  Report Type: 
  Country: None (occurrence: None)
  Receive Date: 20090722
  Receipt Date: 20080724
  Transmission Date: 20100115
  Serious: Yes (Hospitalization)
  Sender: FDA-Public Use
  Company Number: US-BRISTOL-MYERS SQUIBB COMPANY-14266936

PATIENT
  Age: 84 Year
  Sex: Male

DRUGS (15)
  1. COUMADIN [Suspect]
  2. LOVENOX [Suspect]
     Indication: ATRIAL FIBRILLATION
     Dosage: 1MG/KG Q12H.
     Dates: start: 20080425, end: 20080428
  3. TYLENOL (CAPLET) [Concomitant]
  4. CARVEDILOL [Concomitant]
  5. FUROSEMIDE [Concomitant]
  6. POTASSIUM CHLORIDE [Concomitant]
  7. PROPOXYPHENE HCL CAP [Concomitant]
  8. OXYBUTYNIN CHLORIDE [Concomitant]
  9. MORPHINE [Concomitant]
  10. LEVOTHYROXINE SODIUM [Concomitant]
  11. CEREFOLIN [Concomitant]
  12. PERCOCET [Concomitant]
  13. FLUNISOLIDE [Concomitant]
  14. ALPRAZOLAM [Concomitant]
  15. FOLIC ACID [Concomitant]

REACTIONS (2)
  - INTRA-ABDOMINAL HAEMATOMA [None]
  - RETROPERITONEAL HAEMORRHAGE [None]
